FAERS Safety Report 20179578 (Version 1)
Quarter: 2021Q4

REPORT INFORMATION
  Report Type: Spontaneous
  Country: US (occurrence: US)
  Receive Date: 20211214
  Receipt Date: 20211214
  Transmission Date: 20220304
  Serious: Yes (Other)
  Sender: FDA-Public Use
  Company Number: US-CADILA HEALTHCARE LIMITED-US-ZYDUS-072303

PATIENT

DRUGS (2)
  1. LABETALOL HYDROCHLORIDE [Suspect]
     Active Substance: LABETALOL HYDROCHLORIDE
     Indication: Pre-eclampsia
     Dosage: UNK
     Route: 065
  2. LISINOPRIL [Concomitant]
     Active Substance: LISINOPRIL
     Indication: Product used for unknown indication
     Dosage: UNK
     Route: 065

REACTIONS (3)
  - Hepatic failure [Recovered/Resolved]
  - Drug-induced liver injury [Recovered/Resolved]
  - Maternal exposure during pregnancy [Unknown]
